FAERS Safety Report 8721778 (Version 2)
Quarter: 2012Q4

REPORT INFORMATION
  Report Type: 
  Country: US (occurrence: US)
  Receive Date: 20120814
  Receipt Date: 20121226
  Transmission Date: 20130627
  Serious: Yes (Hospitalization)
  Sender: FDA-Public Use
  Company Number: US-PFIZER INC-2012194942

PATIENT
  Age: 66 Year
  Sex: Male
  Weight: 65.31 kg

DRUGS (2)
  1. VFEND [Suspect]
     Indication: KIDNEY TRANSPLANT
     Dosage: 250 mg, 2x/day
     Route: 048
  2. VFEND [Suspect]
     Indication: LUNG DISORDER
     Dosage: UNK,2x/day

REACTIONS (2)
  - Hip fracture [Unknown]
  - Infection [Unknown]
